FAERS Safety Report 8903141 (Version 1)
Quarter: 2012Q4

REPORT INFORMATION
  Report Type: 
  Country: PL (occurrence: PL)
  Receive Date: 20121112
  Receipt Date: 20121112
  Transmission Date: 20130627
  Serious: Yes (Other)
  Sender: FDA-Public Use
  Company Number: PL-BAYER-2012-117756

PATIENT
  Age: 76 Year
  Sex: Female

DRUGS (2)
  1. ULTRAVIST [Suspect]
     Indication: ABDOMINAL CAT
     Dosage: 90 ml, UNK
     Route: 042
     Dates: start: 20121026, end: 20121026
  2. ULTRAVIST [Suspect]
     Indication: ABDOMINAL CAT

REACTIONS (2)
  - Skin necrosis [Recovered/Resolved]
  - Injection site extravasation [None]
